FAERS Safety Report 7127344-7 (Version None)
Quarter: 2010Q4

REPORT INFORMATION
  Report Type: 
  Country: None (occurrence: None)
  Receive Date: 20101129
  Receipt Date: 20100511
  Transmission Date: 20110411
  Serious: No
  Sender: FDA-Public Use
  Company Number: US-PFIZER INC-2010052022

PATIENT
  Sex: Male
  Weight: 90.703 kg

DRUGS (3)
  1. VIAGRA [Suspect]
     Indication: ERECTILE DYSFUNCTION
     Dosage: 50 MG, AS NEEDED
     Route: 048
     Dates: start: 20030829
  2. LISINOPRIL [Concomitant]
     Dosage: UNK
  3. LISINOPRIL [Concomitant]
     Dosage: 20 MG, UNK
     Dates: start: 20100315

REACTIONS (1)
  - DRUG INEFFECTIVE [None]
